FAERS Safety Report 21271498 (Version 1)
Quarter: 2022Q3

REPORT INFORMATION
  Report Type: Spontaneous
  Country: FR (occurrence: FR)
  Receive Date: 20220830
  Receipt Date: 20220830
  Transmission Date: 20221027
  Serious: Yes (Other)
  Sender: FDA-Public Use
  Company Number: FR-GLAXOSMITHKLINE-FR2022GSK122413

PATIENT

DRUGS (12)
  1. VALACYCLOVIR HYDROCHLORIDE [Suspect]
     Active Substance: VALACYCLOVIR HYDROCHLORIDE
     Indication: Herpes simplex
     Dosage: UNK
     Route: 048
     Dates: start: 2012
  2. VALACYCLOVIR HYDROCHLORIDE [Suspect]
     Active Substance: VALACYCLOVIR HYDROCHLORIDE
     Indication: Genital herpes simplex
     Dosage: 500 MG, BID
     Route: 048
     Dates: start: 2021
  3. VALACYCLOVIR HYDROCHLORIDE [Suspect]
     Active Substance: VALACYCLOVIR HYDROCHLORIDE
     Indication: Antiviral treatment
     Dosage: 2 MG/KG, 1D (1 G BID)
     Route: 048
     Dates: start: 20210128
  4. FOSCARNET [Suspect]
     Active Substance: FOSCARNET
     Indication: Antiviral treatment
     Dosage: 80 MG/KG (4 G BID) (WEIGHT-ADJUSTED DOSING)
     Route: 042
     Dates: start: 20210331
  5. FOSCARNET [Suspect]
     Active Substance: FOSCARNET
     Indication: Herpes simplex
     Dosage: 120 MG/KG, 1D (4 G TID)(RAPIDLY INCREASED)
     Route: 042
     Dates: start: 20210413
  6. FOSCARNET [Suspect]
     Active Substance: FOSCARNET
     Indication: Genital herpes simplex
  7. FOSCARNET [Suspect]
     Active Substance: FOSCARNET
     Indication: Skin ulcer
  8. CIDOFOVIR [Suspect]
     Active Substance: CIDOFOVIR
     Indication: Antiviral treatment
     Dosage: UNK UNK, QD
     Route: 061
     Dates: start: 20210614
  9. CIDOFOVIR [Suspect]
     Active Substance: CIDOFOVIR
     Indication: Herpes simplex
     Dosage: UNK UNK, BID
     Route: 061
     Dates: start: 20210722
  10. CIDOFOVIR [Suspect]
     Active Substance: CIDOFOVIR
     Indication: Genital herpes simplex
  11. IMIQUIMOD [Concomitant]
     Active Substance: IMIQUIMOD
     Indication: Herpes simplex
     Dosage: THREE TIMES WEEKLY
  12. IMIQUIMOD [Concomitant]
     Active Substance: IMIQUIMOD
     Indication: Genital herpes simplex

REACTIONS (4)
  - Pathogen resistance [Unknown]
  - Viral mutation identified [Unknown]
  - Drug resistance [Unknown]
  - Drug ineffective [Unknown]
